FAERS Safety Report 6091523-0 (Version None)
Quarter: 2009Q1

REPORT INFORMATION
  Report Type: 
  Country: None (occurrence: None)
  Receive Date: 20090225
  Receipt Date: 20090216
  Transmission Date: 20090719
  Serious: Yes (Hospitalization)
  Sender: FDA-Public Use
  Company Number: PHHY2009GB04811

PATIENT
  Sex: Male

DRUGS (3)
  1. CLOZARIL [Suspect]
     Indication: SCHIZOPHRENIA
     Dosage: 75 MG
     Route: 048
     Dates: start: 20090131, end: 20090207
  2. QUETIAPINE FUMARATE [Concomitant]
     Indication: SCHIZOPHRENIA
     Dosage: 800 MG DAILY
     Route: 048
  3. FLUOXETINE [Concomitant]
     Indication: DEPRESSION
     Dosage: 20 MG DAILY
     Route: 048

REACTIONS (4)
  - GASTRITIS [None]
  - HAEMATEMESIS [None]
  - OESOPHAGEAL RUPTURE [None]
  - VOMITING [None]
